FAERS Safety Report 4494493-1 (Version None)
Quarter: 2004Q4

REPORT INFORMATION
  Report Type: 
  Country: None (occurrence: None)
  Receive Date: 20041102
  Receipt Date: 20041018
  Transmission Date: 20050328
  Serious: Yes (Hospitalization)
  Sender: FDA-Public Use
  Company Number: 2004CG02098

PATIENT
  Age: 69 Year
  Sex: Male
  Weight: 90 kg

DRUGS (5)
  1. ZESTORETIC [Suspect]
     Indication: HYPERTENSION
     Dosage: 20 + 12.5 MG
     Dates: end: 20040908
  2. HYPERIUM [Suspect]
     Indication: HYPERTENSION
     Dosage: 1 MG DAILY PO
     Route: 048
     Dates: end: 20040908
  3. ZOCOR [Suspect]
     Indication: HYPERCHOLESTEROLAEMIA
     Dosage: 20 MG DAILY PO
     Route: 048
     Dates: end: 20040908
  4. ZESTRIL [Suspect]
     Indication: HYPERTENSION
     Dates: start: 20040921
  5. ELISOR [Suspect]
     Indication: HYPERCHOLESTEROLAEMIA
     Dates: start: 20040921

REACTIONS (2)
  - CONDITION AGGRAVATED [None]
  - PANCREATITIS ACUTE [None]
